FAERS Safety Report 5122882-0 (Version None)
Quarter: 2006Q4

REPORT INFORMATION
  Report Type: 
  Country: None (occurrence: None)
  Receive Date: 20061009
  Receipt Date: 20060913
  Transmission Date: 20070319
  Serious: Yes (Death)
  Sender: FDA-Public Use
  Company Number: 2006AP04276

PATIENT
  Age: 27707 Day
  Sex: Female
  Weight: 48 kg

DRUGS (8)
  1. IRESSA [Suspect]
     Indication: LUNG ADENOCARCINOMA STAGE III
     Route: 048
     Dates: start: 20060823, end: 20060826
  2. CARBOPLATIN [Concomitant]
     Dosage: 5 COURSES
     Dates: start: 20051201, end: 20060701
  3. DOCETAXEL [Concomitant]
     Dosage: 5 COURSES
     Dates: start: 20051201, end: 20060701
  4. SERENAL [Concomitant]
     Indication: ANXIETY DISORDER
     Route: 048
     Dates: start: 20050901, end: 20060829
  5. MEILAX [Concomitant]
     Indication: ANXIETY DISORDER
     Route: 048
     Dates: start: 20050901, end: 20060829
  6. GASTER D [Concomitant]
     Indication: GASTRIC ULCER
     Route: 048
     Dates: start: 20050901, end: 20060829
  7. RHYTHMY [Concomitant]
     Indication: INSOMNIA
     Route: 048
     Dates: start: 20050901, end: 20060829
  8. SOLANAX [Concomitant]
     Indication: ANXIETY DISORDER
     Route: 048
     Dates: start: 20050901, end: 20060829

REACTIONS (3)
  - ACUTE RESPIRATORY FAILURE [None]
  - INTERSTITIAL LUNG DISEASE [None]
  - MALIGNANT NEOPLASM PROGRESSION [None]
